FAERS Safety Report 10171307 (Version 1)
Quarter: 2014Q2

REPORT INFORMATION
  Report Type: Spontaneous
  Country: US (occurrence: US)
  Receive Date: 20140514
  Receipt Date: 20140514
  Transmission Date: 20141212
  Serious: No
  Sender: FDA-Public Use
  Company Number: US-PFIZER INC-2014132077

PATIENT
  Age: 57 Year
  Sex: Female
  Weight: 56.69 kg

DRUGS (3)
  1. XANAX [Suspect]
     Indication: MUSCLE SPASMS
     Dosage: UNK
  2. HYDROCODONE [Concomitant]
     Indication: PAIN
     Dosage: UNK
  3. DURAGESIC [Concomitant]
     Indication: PAIN
     Dosage: UNK, EVERY 72 HOURS
     Route: 062

REACTIONS (1)
  - Drug ineffective [Unknown]
